FAERS Safety Report 15346454 (Version 1)
Quarter: 2018Q3

REPORT INFORMATION
  Report Type: Spontaneous
  Country: US (occurrence: US)
  Receive Date: 20180828
  Receipt Date: 20180828
  Transmission Date: 20181010
  Serious: Yes (Disabling, Other)
  Sender: FDA-Public Use
  Company Number: None

PATIENT
  Age: 51 Year
  Sex: Female
  Weight: 100.35 kg

DRUGS (5)
  1. CVS HEALTH SINUS RELIEF [Suspect]
     Active Substance: OXYMETAZOLINE HYDROCHLORIDE
     Indication: SINUSITIS
     Route: 045
  2. AMLODEPENE [Concomitant]
  3. CITALOPRA [Concomitant]
  4. ONE A DAY VITAMIN 51+ [Concomitant]
  5. LOSARTAN. [Concomitant]
     Active Substance: LOSARTAN

REACTIONS (7)
  - Food aversion [None]
  - Ill-defined disorder [None]
  - Bacterial infection [None]
  - Nausea [None]
  - Vomiting [None]
  - Impaired work ability [None]
  - Weight decreased [None]

NARRATIVE: CASE EVENT DATE: 20180205
